FAERS Safety Report 9889140 (Version 1)
Quarter: 2014Q1

REPORT INFORMATION
  Report Type: Spontaneous
  Country: US (occurrence: US)
  Receive Date: 20140211
  Receipt Date: 20140211
  Transmission Date: 20141002
  Serious: Yes (Hospitalization)
  Sender: FDA-Public Use
  Company Number: US-TEVA-461877USA

PATIENT
  Age: 73 Year
  Sex: Male

DRUGS (1)
  1. TREANDA [Suspect]
     Indication: CHRONIC LYMPHOCYTIC LEUKAEMIA
     Dosage: 3 CYCLES

REACTIONS (4)
  - Sepsis [Unknown]
  - Renal disorder [Unknown]
  - Blood urea increased [Unknown]
  - Creatinine renal clearance increased [Unknown]
